FAERS Safety Report 20187003 (Version 1)
Quarter: 2021Q4

REPORT INFORMATION
  Report Type: Spontaneous
  Country: US (occurrence: None)
  Receive Date: 20211214
  Receipt Date: 20211214
  Transmission Date: 20220303
  Serious: Yes (Other)
  Sender: FDA-Public Use
  Company Number: None

PATIENT
  Age: 52 Year
  Sex: Female

DRUGS (1)
  1. HIZENTRA [Suspect]
     Active Substance: HUMAN IMMUNOGLOBULIN G
     Indication: Immunodeficiency common variable
     Route: 058

REACTIONS (8)
  - Injection site pruritus [None]
  - Injection site rash [None]
  - Injection site erythema [None]
  - Product quality issue [None]
  - Fatigue [None]
  - Asthenia [None]
  - Feeling abnormal [None]
  - Myalgia [None]

NARRATIVE: CASE EVENT DATE: 20211207
